FAERS Safety Report 23145648 (Version 1)
Quarter: 2023Q4

REPORT INFORMATION
  Report Type: Spontaneous
  Country: CZ (occurrence: CZ)
  Receive Date: 20231103
  Receipt Date: 20231103
  Transmission Date: 20240110
  Serious: Yes (Other)
  Sender: FDA-Public Use
  Company Number: CZ-MYLANLABS-2023M1115584

PATIENT
  Sex: Male

DRUGS (10)
  1. OXALIPLATIN [Suspect]
     Active Substance: OXALIPLATIN
     Indication: Gastric cancer
     Dosage: UNK (FOLFOX6)
     Route: 065
     Dates: start: 2022
  2. OXALIPLATIN [Suspect]
     Active Substance: OXALIPLATIN
     Dosage: UNK (FOLFOX6), GRADUALLY REDUCED TO 50 PERCENT FROM THE 8TH CYCLE
     Route: 065
  3. OXALIPLATIN [Suspect]
     Active Substance: OXALIPLATIN
     Dosage: UNK (14TH CYCLE)
     Route: 065
  4. FLUOROURACIL [Concomitant]
     Active Substance: FLUOROURACIL
     Indication: Gastric cancer
     Dosage: UNK (FOLFOX6)
     Route: 065
     Dates: start: 2022
  5. FLUOROURACIL [Concomitant]
     Active Substance: FLUOROURACIL
     Dosage: UNK (2ND LINE REGIMEN WITH FOLFIRI)
     Route: 065
  6. LEUCOVORIN [Concomitant]
     Active Substance: LEUCOVORIN\LEUCOVORIN CALCIUM
     Indication: Gastric cancer
     Dosage: UNK (FOLFOX6)
     Route: 065
     Dates: start: 2022
  7. LEUCOVORIN [Concomitant]
     Active Substance: LEUCOVORIN\LEUCOVORIN CALCIUM
     Dosage: UNK (2ND LINE REGIMEN WITH FOLFIRI)
     Route: 065
  8. NIVOLUMAB [Concomitant]
     Active Substance: NIVOLUMAB
     Indication: Gastric cancer
     Dosage: UNK (ADDED TO THE TREATMENT FROM 3RD CYCLE)
     Route: 065
     Dates: start: 2022
  9. PACLITAXEL [Concomitant]
     Active Substance: PACLITAXEL
     Dosage: UNK (3RD LINE TREATMENT)
     Route: 065
  10. IRINOTECAN [Concomitant]
     Active Substance: IRINOTECAN
     Dosage: UNK (2ND LINE REGIMEN WITH FOLFIRI)
     Route: 065

REACTIONS (5)
  - Neuropathy peripheral [Unknown]
  - Metastases to liver [Unknown]
  - Neutropenia [Unknown]
  - Thrombocytopenia [Unknown]
  - Lymphadenopathy [Unknown]

NARRATIVE: CASE EVENT DATE: 20220101
